FAERS Safety Report 8057214-1 (Version None)
Quarter: 2012Q1

REPORT INFORMATION
  Report Type: 
  Country: None (occurrence: None)
  Receive Date: 20120119
  Receipt Date: 20120112
  Transmission Date: 20120608
  Serious: Yes (Other)
  Sender: FDA-Public Use
  Company Number: PHHY2012FI002914

PATIENT
  Sex: Male

DRUGS (21)
  1. TIZANIDINE HCL [Concomitant]
     Dosage: ONE TABLET TWICE A DAY
  2. PREDNISOLONE [Concomitant]
     Dosage: 5 MG, HALF A TABLET PER DAY
  3. CALCIUM CARBONATE [Concomitant]
     Dosage: 500MG /400 IU , DOSE OF ONE TABLET TWICE A DAY
     Route: 048
  4. MOVIPREP [Concomitant]
     Dosage: ORAL SOLUTION IN PORTION BAGS WITH DOSE OF HALF PORTION BAG TWICE A DAY
     Route: 048
  5. OFTAN-DEXA [Concomitant]
     Dosage: 1 DROP TWICE A DAY FOR A WEEK
  6. LEVEMIR [Concomitant]
     Dosage: 100 U/ML
     Route: 058
  7. PRIMASPAN [Concomitant]
     Dosage: 100 MG, ONE TABLET ONCE A DAY
  8. PREDNISOLONE [Concomitant]
     Dosage: 20 MG, FOR FOUR DAYS
  9. NALTREXONE HYDROCHLORIDE [Concomitant]
     Dosage: 10 MG, ONE TABLET PER SEVEN DAYS
  10. SEROQUEL [Concomitant]
     Dosage: 25 MG, ONE TABLET ONCE A DAY
  11. PREDNISOLONE [Concomitant]
     Dosage: 2.5 MG, ONCE A DAY
  12. HIPEKSAL [Concomitant]
     Dosage: 1 G, ONCE A DAY EVERY THIRD WEEK
     Route: 048
  13. CORTISONE ACETATE [Concomitant]
     Dosage: 40 MG
     Route: 048
     Dates: start: 20111223
  14. OFTAN-DEXA [Concomitant]
     Dosage: FOUR TIMES A DAY
  15. ZOLEDRONOC ACID [Suspect]
     Indication: OSTEOPOROSIS
     Dosage: 5 MG, YEARLY
     Route: 042
     Dates: start: 20111220
  16. DURAGESIC-100 [Concomitant]
     Dosage: 12 MICROG/H PATCHES
  17. PREDNISOLONE [Concomitant]
     Dosage: 10 MG, FOR THREE DAYS
  18. FOLIC ACID [Concomitant]
     Dosage: 5 MG, ONE TABLET PER SEVEN DAYS
  19. NITROFUR-C [Concomitant]
     Dosage: 75 MG, ONE TABLET ONCE A DAY EVERY THIRD WEEK
     Route: 048
  20. NOVORAPID [Concomitant]
     Dosage: 100 U/ML
     Route: 058
  21. LYRICA [Concomitant]
     Dosage: 300 MG, ONE TABLET TWICE A DAY

REACTIONS (13)
  - OCULAR DISCOMFORT [None]
  - OCULAR HYPERAEMIA [None]
  - EXOPHTHALMOS [None]
  - ANEURYSM [None]
  - INSOMNIA [None]
  - CONJUNCTIVAL IRRITATION [None]
  - SCLERITIS [None]
  - PYREXIA [None]
  - EYE PAIN [None]
  - EYE HAEMORRHAGE [None]
  - EYELID OEDEMA [None]
  - CONJUNCTIVAL OEDEMA [None]
  - MYDRIASIS [None]
